FAERS Safety Report 22386975 (Version 1)
Quarter: 2023Q2

REPORT INFORMATION
  Report Type: Other
  Country: CN (occurrence: CN)
  Receive Date: 20230531
  Receipt Date: 20230531
  Transmission Date: 20230721
  Serious: Yes (Other)
  Sender: FDA-Public Use
  Company Number: CN-GE HEALTHCARE-2023CSU004187

PATIENT
  Age: 38 Year
  Sex: Female

DRUGS (2)
  1. OMNIPAQUE [Suspect]
     Active Substance: IOHEXOL
     Indication: Salpingogram
     Dosage: 50 ML:17.5 G, 1 VIAL. SINGLE
     Route: 015
     Dates: start: 20230519, end: 20230519
  2. OMNIPAQUE [Suspect]
     Active Substance: IOHEXOL
     Indication: Infertility female

REACTIONS (6)
  - Dizziness [Recovering/Resolving]
  - Chest discomfort [Recovering/Resolving]
  - Abdominal pain lower [Recovering/Resolving]
  - Retching [Recovering/Resolving]
  - Nausea [Recovering/Resolving]
  - Cold sweat [Recovering/Resolving]

NARRATIVE: CASE EVENT DATE: 20230519
